FAERS Safety Report 5130472-9 (Version None)
Quarter: 2006Q4

REPORT INFORMATION
  Report Type: 
  Country: None (occurrence: None)
  Receive Date: 20061019
  Receipt Date: 20061006
  Transmission Date: 20070319
  Serious: Yes (Hospitalization)
  Sender: FDA-Public Use
  Company Number: PHEH2006US12671

PATIENT
  Age: 88 Year
  Sex: Female

DRUGS (2)
  1. ZELNORM [Suspect]
  2. BETA BLOCKING AGENTS [Suspect]

REACTIONS (3)
  - CHEST PAIN [None]
  - DEHYDRATION [None]
  - NAUSEA [None]
